FAERS Safety Report 9602245 (Version 1)
Quarter: 2013Q4

REPORT INFORMATION
  Report Type: Spontaneous
  Country: JP (occurrence: None)
  Receive Date: 20131003
  Receipt Date: 20131003
  Transmission Date: 20140711
  Serious: Yes (Other)
  Sender: FDA-Public Use
  Company Number: JP-013144

PATIENT
  Sex: Male

DRUGS (1)
  1. GONAX [Suspect]
     Indication: PROSTATE CANCER

REACTIONS (1)
  - Lung neoplasm malignant [None]
